FAERS Safety Report 4821527-4 (Version None)
Quarter: 2005Q4

REPORT INFORMATION
  Report Type: 
  Country: None (occurrence: None)
  Receive Date: 20051107
  Receipt Date: 20051011
  Transmission Date: 20060501
  Serious: Yes (Other)
  Sender: FDA-Public Use
  Company Number: SE-GILEAD-2005-0008888

PATIENT
  Sex: Female

DRUGS (5)
  1. VIREAD [Suspect]
     Route: 048
     Dates: start: 20031006
  2. EPIVIR [Suspect]
     Route: 048
     Dates: start: 20040708
  3. REYATAZ [Suspect]
     Route: 048
     Dates: start: 20031006
  4. NORVIR [Suspect]
     Dates: start: 20031006
  5. IMOVANE [Concomitant]

REACTIONS (2)
  - ABORTION [None]
  - DRUG EXPOSURE DURING PREGNANCY [None]
